FAERS Safety Report 20278921 (Version 4)
Quarter: 2022Q2

REPORT INFORMATION
  Report Type: Report from Study
  Country: CN (occurrence: CN)
  Receive Date: 20220103
  Receipt Date: 20220413
  Transmission Date: 20220721
  Serious: Yes (Death, Hospitalization, Other)
  Sender: FDA-Public Use
  Company Number: CN-NOVARTISPH-NVSC2021CN298167

PATIENT
  Age: 42 Year
  Sex: Female
  Weight: 43.9 kg

DRUGS (3)
  1. TYKERB [Suspect]
     Active Substance: LAPATINIB DITOSYLATE
     Indication: Breast cancer
     Dosage: 1250 MG, QD
     Route: 048
     Dates: start: 20210730, end: 20220112
  2. CAPECITABINE [Suspect]
     Active Substance: CAPECITABINE
     Indication: Breast cancer
     Dosage: 2500 MG, QD
     Route: 048
     Dates: start: 20210730, end: 20211124
  3. CAPECITABINE [Suspect]
     Active Substance: CAPECITABINE
     Dosage: 2000 MG, QD
     Route: 048
     Dates: start: 20211203, end: 20220112

REACTIONS (13)
  - Multiple organ dysfunction syndrome [Fatal]
  - Breast cancer [Fatal]
  - Malignant neoplasm progression [Fatal]
  - Pneumonia [Not Recovered/Not Resolved]
  - Cough [Not Recovered/Not Resolved]
  - Dehydration [Not Recovered/Not Resolved]
  - Breast cancer recurrent [Unknown]
  - Headache [Not Recovered/Not Resolved]
  - Dizziness [Unknown]
  - Lip ulceration [Unknown]
  - Blood uric acid increased [Not Recovered/Not Resolved]
  - Chest discomfort [Unknown]
  - Confusional state [Unknown]

NARRATIVE: CASE EVENT DATE: 20211124
